FAERS Safety Report 8297947-5 (Version None)
Quarter: 2012Q2

REPORT INFORMATION
  Report Type: 
  Country: None (occurrence: None)
  Receive Date: 20120419
  Receipt Date: 20120413
  Transmission Date: 20120825
  Serious: No
  Sender: FDA-Public Use
  Company Number: US-B.I. PHARMACEUTICALS,INC./RIDGEFIELD-2012-BP-07059BP

PATIENT
  Sex: Female

DRUGS (2)
  1. MICARDIS HCT [Suspect]
     Indication: HYPERTENSION
     Dosage: STRENGTH: 80 MG / 12.5 MG; DAILY DOSE: 80 MG / 12.5 MG
     Route: 048
     Dates: start: 20070101, end: 20120330
  2. CLONIDINE [Concomitant]
     Indication: HYPERTENSION
     Dosage: 0.2 MG
     Route: 048
     Dates: start: 19950101

REACTIONS (3)
  - BLOOD PRESSURE INCREASED [None]
  - HEADACHE [None]
  - DIZZINESS [None]
